FAERS Safety Report 25558477 (Version 2)
Quarter: 2025Q3

REPORT INFORMATION
  Report Type: Report from Study
  Country: CA (occurrence: CA)
  Receive Date: 20250715
  Receipt Date: 20250830
  Transmission Date: 20251020
  Serious: Yes (Other)
  Sender: UCB
  Company Number: CA-UCBSA-2024046735

PATIENT
  Sex: Female
  Weight: 112 kg

DRUGS (8)
  1. BIMEKIZUMAB [Suspect]
     Active Substance: BIMEKIZUMAB
     Indication: Psoriatic arthropathy
     Dosage: 160 MILLIGRAM, EV 4 WEEKS
     Route: 058
     Dates: start: 20240906
  2. BIMEKIZUMAB [Suspect]
     Active Substance: BIMEKIZUMAB
     Dosage: 160 MILLIGRAM, EV 4 WEEKS
     Route: 058
     Dates: start: 20250214
  3. ALBUTEROL SULFATE [Concomitant]
     Active Substance: ALBUTEROL SULFATE
     Indication: Product used for unknown indication
  4. CORTISONE [Concomitant]
     Active Substance: CORTISONE
     Indication: Product used for unknown indication
  5. DEXILANT [Concomitant]
     Active Substance: DEXLANSOPRAZOLE
     Indication: Product used for unknown indication
  6. CELEBREX [Concomitant]
     Active Substance: CELECOXIB
     Indication: Product used for unknown indication
  7. SYNTHROID [Concomitant]
     Active Substance: LEVOTHYROXINE SODIUM
     Indication: Product used for unknown indication
  8. MEGESTROL [Concomitant]
     Active Substance: MEGESTROL
     Indication: Product used for unknown indication

REACTIONS (12)
  - Hysterectomy [Recovered/Resolved]
  - Psoriatic arthropathy [Not Recovered/Not Resolved]
  - Diarrhoea [Recovered/Resolved]
  - Abdominal pain [Unknown]
  - Aphonia [Unknown]
  - Muscle contracture [Unknown]
  - Psoriasis [Not Recovered/Not Resolved]
  - Weight decreased [Not Recovered/Not Resolved]
  - Loss of personal independence in daily activities [Not Recovered/Not Resolved]
  - Inappropriate schedule of product administration [Unknown]
  - Intentional dose omission [Unknown]
  - Therapeutic response shortened [Unknown]

NARRATIVE: CASE EVENT DATE: 20240101
